FAERS Safety Report 10059331 (Version 3)
Quarter: 2014Q2

REPORT INFORMATION
  Report Type: Spontaneous
  Country: US (occurrence: US)
  Receive Date: 20140404
  Receipt Date: 20140605
  Transmission Date: 20141212
  Serious: Yes (Other)
  Sender: FDA-Public Use
  Company Number: US-BAYER-2014-048752

PATIENT
  Age: 25 Year
  Sex: Female
  Weight: 111.11 kg

DRUGS (1)
  1. MIRENA [Suspect]
     Indication: CONTRACEPTION
     Dosage: 20 MCG/24HR, CONT
     Route: 015
     Dates: start: 20130206, end: 20140324

REACTIONS (4)
  - Ectopic pregnancy [Recovered/Resolved]
  - Drug ineffective [None]
  - Menstruation delayed [Recovered/Resolved]
  - Device expulsion [Recovered/Resolved]
